FAERS Safety Report 6427806-1 (Version None)
Quarter: 2009Q4

REPORT INFORMATION
  Report Type: 
  Country: None (occurrence: None)
  Receive Date: 20091104
  Receipt Date: 20091104
  Transmission Date: 20100525
  Serious: Yes (Other)
  Sender: FDA-Public Use
  Company Number: None

PATIENT
  Sex: Female
  Weight: 74.8435 kg

DRUGS (1)
  1. LYRICA [Suspect]
     Dosage: 214 DAY 24 DAY
     Dates: start: 20091013, end: 20091021

REACTIONS (4)
  - CONVULSION [None]
  - FALL [None]
  - INSOMNIA [None]
  - OEDEMA PERIPHERAL [None]
